FAERS Safety Report 7719054-X (Version None)
Quarter: 2011Q3

REPORT INFORMATION
  Report Type: 
  Country: None (occurrence: None)
  Receive Date: 20110830
  Receipt Date: 20110824
  Transmission Date: 20111222
  Serious: Yes (Hospitalization)
  Sender: FDA-Public Use
  Company Number: FR-MERCK-1108USA03289

PATIENT
  Age: 37 Year
  Sex: Male

DRUGS (4)
  1. PIPERACILLIN AND TAZOBACTAM [Suspect]
     Route: 042
     Dates: start: 20110613, end: 20110615
  2. VANCOMYCIN [Suspect]
     Route: 042
     Dates: start: 20110616, end: 20110619
  3. CANCIDAS [Concomitant]
     Route: 065
     Dates: start: 20110616
  4. PRIMAXIN [Suspect]
     Route: 042
     Dates: start: 20110616, end: 20110620

REACTIONS (2)
  - GENERALISED ERYTHEMA [None]
  - SKIN EXFOLIATION [None]
